FAERS Safety Report 9665577 (Version 4)
Quarter: 2013Q4

REPORT INFORMATION
  Report Type: Report from Study
  Country: AU (occurrence: AU)
  Receive Date: 20131104
  Receipt Date: 20131125
  Transmission Date: 20140711
  Serious: Yes (Hospitalization)
  Sender: FDA-Public Use
  Company Number: AU-UCBSA-101042

PATIENT
  Age: 48 Year
  Sex: Female
  Weight: 69 kg

DRUGS (34)
  1. CERTOLIZUMAB PEGOL [Suspect]
     Indication: RHEUMATOID ARTHRITIS
     Dosage: 10 DOSES
     Route: 058
     Dates: start: 20130326, end: 20130813
  2. METHOTREXATE [Concomitant]
     Indication: RHEUMATOID ARTHRITIS
     Dosage: QS
     Route: 048
     Dates: start: 201206
  3. NAPROXEN [Concomitant]
     Indication: RHEUMATOID ARTHRITIS
     Route: 048
     Dates: start: 2006, end: 20130903
  4. NAPROXEN [Concomitant]
     Indication: RHEUMATOID ARTHRITIS
     Route: 048
     Dates: start: 20130904, end: 20130913
  5. NAPROXEN [Concomitant]
     Indication: RHEUMATOID ARTHRITIS
     Route: 048
     Dates: start: 20130914, end: 20131018
  6. NEXIUM [Concomitant]
     Indication: GASTROOESOPHAGEAL REFLUX PROPHYLAXIS
     Dosage: QAM
     Route: 048
     Dates: start: 20130602, end: 20131017
  7. GABAPENTIN [Concomitant]
     Indication: POST HERPETIC NEURALGIA
     Dosage: QPM
     Route: 048
     Dates: start: 201306, end: 2013
  8. GABAPENTIN [Concomitant]
     Indication: POST HERPETIC NEURALGIA
     Dosage: TDS
     Route: 048
     Dates: start: 20130723, end: 20131101
  9. GABAPENTIN [Concomitant]
     Indication: POST HERPETIC NEURALGIA
     Route: 048
     Dates: start: 20131102
  10. AMITRIPTYLINE HYDROCHLORIDE [Concomitant]
     Indication: POST HERPETIC NEURALGIA
     Dosage: QPM
     Route: 048
     Dates: start: 20130708
  11. FOLIC ACID [Concomitant]
     Indication: VITAMIN SUPPLEMENTATION
     Route: 048
     Dates: start: 20130715
  12. TARGIN [Concomitant]
     Indication: VIRAL INFECTION
     Dosage: 10/5 MID,  20/10 BID (1 TABLET)
     Route: 048
     Dates: start: 20130719, end: 20131019
  13. TARGIN [Concomitant]
     Indication: ROTATOR CUFF SYNDROME
     Dosage: 10/5 MID,  20/10 BID (1 TABLET)
     Route: 048
     Dates: start: 20130719, end: 20131019
  14. TARGIN [Concomitant]
     Indication: VIRAL INFECTION
     Dosage: 20/10 1 TAB; BID
     Route: 048
     Dates: start: 20130719, end: 20131101
  15. TARGIN [Concomitant]
     Indication: ROTATOR CUFF SYNDROME
     Dosage: 20/10 1 TAB; BID
     Route: 048
     Dates: start: 20130719, end: 20131101
  16. TARGIN [Concomitant]
     Indication: VIRAL INFECTION
     Dosage: 10/5; 1 TAB BID
     Route: 048
     Dates: start: 20131102
  17. TARGIN [Concomitant]
     Indication: ROTATOR CUFF SYNDROME
     Dosage: 10/5; 1 TAB BID
     Route: 048
     Dates: start: 20131102
  18. PREDNISOLONE [Concomitant]
     Indication: ASTHMA
     Route: 048
     Dates: start: 20130903, end: 20130905
  19. PREDNISOLONE [Concomitant]
     Indication: ASTHMA
     Route: 048
     Dates: start: 20130905, end: 20130911
  20. PREDNISOLONE [Concomitant]
     Indication: ASTHMA
     Route: 048
     Dates: start: 20130912, end: 20130918
  21. PREDNISOLONE [Concomitant]
     Indication: ASTHMA
     Dosage: WEANING DOSE ; QD
     Route: 048
     Dates: start: 20130919, end: 201310
  22. PREDNISOLONE [Concomitant]
     Indication: ASTHMA
     Route: 048
     Dates: start: 201310
  23. CLINDAMYCIN [Concomitant]
     Indication: ASTHMA
     Route: 048
     Dates: start: 20130906, end: 20130913
  24. RULIDE [Concomitant]
     Indication: ASTHMA
     Route: 048
     Dates: start: 20130906, end: 20130910
  25. VENTOLIN [Concomitant]
     Indication: ASTHMA
     Dosage: 2.5-5 MG
     Route: 055
     Dates: start: 20130907, end: 20130913
  26. ENDONE [Concomitant]
     Indication: ROTATOR CUFF SYNDROME
     Dosage: 5-10 MG Q4-6 HR AS NEEDED
     Route: 048
     Dates: start: 20130730, end: 20131015
  27. ENDONE [Concomitant]
     Indication: VIRAL INFECTION
     Dosage: 5-10 MG Q4-6 HR AS NEEDED
     Route: 048
     Dates: start: 20130730, end: 20131015
  28. ENDONE [Concomitant]
     Indication: PAIN
     Dosage: 5-10 MG Q4-6 HR AS NEEDED
     Route: 048
     Dates: start: 20130730, end: 20131015
  29. MOMETASONE FUROATE [Concomitant]
     Indication: ASTHMA
     Dosage: 2 PUFFS
     Route: 055
     Dates: start: 20130912, end: 201310
  30. KEFLEX [Concomitant]
     Indication: ASTHMA
     Route: 048
     Dates: end: 20130904
  31. TEMAZEPAM [Concomitant]
     Indication: INSOMNIA
     Dosage: 10-20 MG QD PRN
     Route: 048
     Dates: start: 20130730, end: 201310
  32. DOCUSATE SODIUM\SENNOSIDES [Concomitant]
     Indication: CONSTIPATION
     Dosage: 2 TABS; QD; PRN
     Route: 048
     Dates: start: 20130730, end: 201310
  33. LACTULOSE [Concomitant]
     Indication: CONSTIPATION
     Dosage: QD
     Route: 048
     Dates: start: 20130730, end: 201310
  34. IRON [Concomitant]
     Indication: IRON DEFICIENCY
     Dosage: 1 UNIT ONCE
     Route: 042
     Dates: start: 20131010, end: 20131010

REACTIONS (1)
  - Gastrointestinal haemorrhage [Recovered/Resolved]
